FAERS Safety Report 19780527 (Version 4)
Quarter: 2021Q4

REPORT INFORMATION
  Report Type: Other
  Country: DE (occurrence: DE)
  Receive Date: 20210902
  Receipt Date: 20211011
  Transmission Date: 20220303
  Serious: Yes (Hospitalization, Congenital Anomaly)
  Sender: FDA-Public Use
  Company Number: DE-ROCHE-2802406

PATIENT
  Age: 4 Day
  Sex: Male
  Weight: 2.55 kg

DRUGS (10)
  1. OCRELIZUMAB [Suspect]
     Active Substance: OCRELIZUMAB
     Indication: Multiple sclerosis
     Route: 064
  2. ACETAMINOPHEN [Concomitant]
     Active Substance: ACETAMINOPHEN
     Dates: start: 20200122, end: 20200122
  3. ACETAMINOPHEN [Concomitant]
     Active Substance: ACETAMINOPHEN
     Dates: start: 20200207, end: 20200207
  4. ACETAMINOPHEN [Concomitant]
     Active Substance: ACETAMINOPHEN
     Dates: start: 20200914, end: 20200917
  5. DIMETHINDENE [Concomitant]
     Active Substance: DIMETHINDENE
     Dates: start: 20200122, end: 20200122
  6. DIMETHINDENE [Concomitant]
     Active Substance: DIMETHINDENE
     Dates: start: 20200207, end: 20200207
  7. CORTISONE [Concomitant]
     Active Substance: CORTISONE
     Dates: start: 20200122, end: 20200122
  8. CORTISONE [Concomitant]
     Active Substance: CORTISONE
     Dates: start: 20200207, end: 20200207
  9. FOLIC ACID [Concomitant]
     Active Substance: FOLIC ACID
     Dates: start: 20200602, end: 20200818
  10. FOLIC ACID [Concomitant]
     Active Substance: FOLIC ACID
     Dates: start: 20200819, end: 20210201

REACTIONS (3)
  - Ureteric dilatation [Not Recovered/Not Resolved]
  - Urinary tract infection [Recovering/Resolving]
  - Foetal exposure during pregnancy [Unknown]

NARRATIVE: CASE EVENT DATE: 20210216
